FAERS Safety Report 5502198-0 (Version None)
Quarter: 2007Q4

REPORT INFORMATION
  Report Type: 
  Country: None (occurrence: None)
  Receive Date: 20071030
  Receipt Date: 20071023
  Transmission Date: 20080405
  Serious: Yes (Other)
  Sender: FDA-Public Use
  Company Number: US-ASTRAZENECA-2007UW22954

PATIENT
  Age: 42 Year
  Sex: Female

DRUGS (4)
  1. TENORMIN [Suspect]
     Route: 048
  2. LISINOPRIL [Suspect]
     Route: 048
  3. VERAPAMIL [Suspect]
  4. CLONIDINE [Suspect]

REACTIONS (2)
  - DRUG INEFFECTIVE [None]
  - HYPERTENSION [None]
